FAERS Safety Report 18841249 (Version 1)
Quarter: 2021Q1

REPORT INFORMATION
  Report Type: Report from Study
  Country: US (occurrence: US)
  Receive Date: 20210203
  Receipt Date: 20210203
  Transmission Date: 20210419
  Serious: Yes (Hospitalization)
  Sender: FDA-Public Use
  Company Number: US-ASTRAZENECA-2021A017212

PATIENT
  Age: 776 Month
  Sex: Male
  Weight: 59.1 kg

DRUGS (2)
  1. MEDI4736 [Suspect]
     Active Substance: DURVALUMAB
     Indication: SQUAMOUS CELL CARCINOMA OF HEAD AND NECK
     Dosage: 1500.0MG UNKNOWN
     Route: 042
     Dates: start: 20200814
  2. RADIOTHERAPY [Suspect]
     Active Substance: RADIATION THERAPY
     Indication: SQUAMOUS CELL CARCINOMA OF HEAD AND NECK
     Dosage: 70 GY, 35 FRACTIONS
     Route: 065
     Dates: end: 20201016

REACTIONS (3)
  - Dysphagia [Recovering/Resolving]
  - Stomatitis [Unknown]
  - Weight decreased [Unknown]

NARRATIVE: CASE EVENT DATE: 20201125
